FAERS Safety Report 16154589 (Version 5)
Quarter: 2019Q4

REPORT INFORMATION
  Report Type: Spontaneous
  Country: CA (occurrence: CA)
  Receive Date: 20190403
  Receipt Date: 20191002
  Transmission Date: 20200122
  Serious: Yes (Other)
  Sender: FDA-Public Use
  Company Number: CA-PFIZER INC-2018497004

PATIENT
  Age: 20 Year
  Sex: Female
  Weight: 65 kg

DRUGS (5)
  1. XELJANZ [Suspect]
     Active Substance: TOFACITINIB CITRATE
     Dosage: 5 MG, 2X/DAY
     Route: 048
     Dates: start: 2019, end: 2019
  2. XELJANZ [Suspect]
     Active Substance: TOFACITINIB CITRATE
     Dosage: 5 MG, 2X/DAY
     Route: 048
     Dates: start: 2019, end: 2019
  3. XELJANZ [Suspect]
     Active Substance: TOFACITINIB CITRATE
     Indication: COLITIS ULCERATIVE
     Dosage: 10 MG, TWICE A DAY (BID) (INDUCTION)
     Route: 048
     Dates: start: 20181205, end: 20181206
  4. MEZAVANT [Concomitant]
     Active Substance: MESALAMINE
     Dosage: UNK
  5. XELJANZ [Suspect]
     Active Substance: TOFACITINIB CITRATE
     Dosage: 10 MG, TWICE A DAY (BID)
     Route: 048
     Dates: start: 20181210, end: 2019

REACTIONS (8)
  - Viral infection [Unknown]
  - Haematochezia [Recovered/Resolved]
  - Gastrointestinal haemorrhage [Not Recovered/Not Resolved]
  - Headache [Not Recovered/Not Resolved]
  - Ear infection [Unknown]
  - Tonsillar hypertrophy [Unknown]
  - Pyrexia [Not Recovered/Not Resolved]
  - Influenza [Not Recovered/Not Resolved]
